FAERS Safety Report 8398860-5 (Version None)
Quarter: 2012Q1

REPORT INFORMATION
  Report Type: 
  Country: None (occurrence: None)
  Receive Date: 20120323
  Receipt Date: 20111206
  Transmission Date: 20120608
  Serious: Yes (Other)
  Sender: FDA-Public Use
  Company Number: 163-21880-11113290

PATIENT
  Age: 71 Year
  Sex: Male

DRUGS (2)
  1. REVLIMID [Suspect]
     Indication: PLASMACYTOSIS
     Dosage: 25 MG, DAILY, PO
     Route: 048
     Dates: start: 20111201
  2. REVLIMID [Suspect]
     Indication: PLASMACYTOSIS
     Dosage: 25 MG, DAILY, PO
     Route: 048
     Dates: start: 20111001

REACTIONS (4)
  - RENAL FAILURE [None]
  - TOXICITY TO VARIOUS AGENTS [None]
  - THROMBOCYTOPENIA [None]
  - ANAEMIA [None]
